FAERS Safety Report 12204685 (Version 1)
Quarter: 2016Q1

REPORT INFORMATION
  Report Type: Spontaneous
  Country: NL (occurrence: NL)
  Receive Date: 20160323
  Receipt Date: 20160323
  Transmission Date: 20160526
  Serious: Yes (Other)
  Sender: FDA-Public Use
  Company Number: NL-B. BRAUN MEDICAL INC.-1049497

PATIENT
  Age: 47 Year
  Sex: Female
  Weight: 63 kg

DRUGS (4)
  1. METRONIDAZOLE. [Suspect]
     Active Substance: METRONIDAZOLE
     Indication: CHOLECYSTECTOMY
     Dates: start: 20160119, end: 20160119
  2. OMEPRAZOLE. [Concomitant]
     Active Substance: OMEPRAZOLE
  3. DICLOFENAC-NATRIUM [Concomitant]
     Active Substance: DICLOFENAC SODIUM
  4. CEFAZOLINE [Suspect]
     Active Substance: CEFAZOLIN SODIUM
     Dates: start: 20160119, end: 20160119

REACTIONS (1)
  - Anaphylactic shock [None]
